FAERS Safety Report 19054852 (Version 5)
Quarter: 2022Q1

REPORT INFORMATION
  Report Type: Spontaneous
  Country: JP (occurrence: JP)
  Receive Date: 20210325
  Receipt Date: 20220119
  Transmission Date: 20220423
  Serious: Yes (Death, Other)
  Sender: FDA-Public Use
  Company Number: JP-JAZZ-2021-JP-005266

PATIENT
  Age: 51 Year
  Sex: Female
  Weight: 55.8 kg

DRUGS (1)
  1. DEFITELIO [Suspect]
     Active Substance: DEFIBROTIDE SODIUM
     Indication: Venoocclusive liver disease
     Dosage: 25 MILLIGRAM/KILOGRAM, QD
     Route: 042
     Dates: start: 20210219, end: 20210315

REACTIONS (10)
  - Cerebral haemorrhage [Fatal]
  - Hepatic encephalopathy [Fatal]
  - Thrombotic microangiopathy [Fatal]
  - Hypoxia [Fatal]
  - Complications of bone marrow transplant [Fatal]
  - Candida endophthalmitis [Fatal]
  - Systemic candida [Fatal]
  - Respiratory failure [Unknown]
  - Venoocclusive liver disease [Fatal]
  - Off label use [Unknown]

NARRATIVE: CASE EVENT DATE: 20210219
